FAERS Safety Report 12884637 (Version 5)
Quarter: 2017Q3

REPORT INFORMATION
  Report Type: Spontaneous
  Country: US (occurrence: US)
  Receive Date: 20161026
  Receipt Date: 20170705
  Transmission Date: 20171127
  Serious: Yes (Other)
  Sender: FDA-Public Use
  Company Number: PHEH2016US027650

PATIENT
  Sex: Male

DRUGS (2)
  1. AFINITOR [Suspect]
     Active Substance: EVEROLIMUS
     Indication: RENAL CANCER
     Route: 065
  2. LENVATINIB [Suspect]
     Active Substance: LENVATINIB
     Indication: RENAL CANCER
     Dosage: 18 MG, QD
     Route: 048
     Dates: start: 20161014

REACTIONS (18)
  - Brain oedema [Unknown]
  - Dizziness [Recovered/Resolved]
  - Gait disturbance [Recovered/Resolved]
  - Vomiting [Recovered/Resolved]
  - Nausea [Recovered/Resolved]
  - Dyspnoea [Unknown]
  - Insomnia [Unknown]
  - Muscle spasms [Unknown]
  - Anxiety [Unknown]
  - Abdominal distension [Unknown]
  - Chest discomfort [Unknown]
  - Musculoskeletal pain [Not Recovered/Not Resolved]
  - Dehydration [Recovered/Resolved]
  - Diarrhoea [Unknown]
  - Brain neoplasm [Unknown]
  - Haemorrhage [Recovered/Resolved]
  - Second primary malignancy [Unknown]
  - Decreased appetite [Unknown]
